FAERS Safety Report 25113822 (Version 1)
Quarter: 2025Q1

REPORT INFORMATION
  Report Type: Spontaneous
  Country: CA (occurrence: CA)
  Receive Date: 20250324
  Receipt Date: 20250324
  Transmission Date: 20250409
  Serious: Yes (Other)
  Sender: IPSEN BIOPHARMACEUTICALS, INC.
  Company Number: CA-IPSEN Group, Research and Development-2025-06388

PATIENT
  Age: 39 Year
  Sex: Female

DRUGS (4)
  1. DYSPORT [Suspect]
     Active Substance: ABOBOTULINUMTOXINA
     Indication: Skin cosmetic procedure
     Route: 030
  2. FISH OIL [Concomitant]
     Active Substance: FISH OIL
  3. SYNTHROID [Concomitant]
     Active Substance: LEVOTHYROXINE SODIUM
  4. CHOLECALCIFEROL [Concomitant]
     Active Substance: CHOLECALCIFEROL

REACTIONS (21)
  - Brain fog [Recovering/Resolving]
  - Burning sensation [Recovering/Resolving]
  - Decreased appetite [Recovering/Resolving]
  - Dry eye [Recovering/Resolving]
  - Dry mouth [Recovering/Resolving]
  - Feeling abnormal [Recovering/Resolving]
  - Heart rate increased [Recovering/Resolving]
  - Hypertonic bladder [Recovering/Resolving]
  - Hypoacusis [Recovering/Resolving]
  - Hypoaesthesia [Recovering/Resolving]
  - Hypoaesthesia oral [Recovering/Resolving]
  - Insomnia [Recovering/Resolving]
  - Muscle tightness [Recovering/Resolving]
  - Muscular weakness [Recovering/Resolving]
  - Panic reaction [Recovering/Resolving]
  - Paraesthesia [Recovering/Resolving]
  - Sensitive skin [Recovering/Resolving]
  - Sympathomimetic effect [Recovering/Resolving]
  - Thirst [Recovering/Resolving]
  - Tinnitus [Recovering/Resolving]
  - Tremor [Recovering/Resolving]
